FAERS Safety Report 16955764 (Version 1)
Quarter: 2019Q4

REPORT INFORMATION
  Report Type: Spontaneous
  Country: CA (occurrence: CA)
  Receive Date: 20191024
  Receipt Date: 20191024
  Transmission Date: 20200122
  Serious: Yes (Other)
  Sender: FDA-Public Use
  Company Number: CA-TEVA-2019-CA-1124722

PATIENT
  Age: 7 Year
  Sex: Female
  Weight: 22 kg

DRUGS (9)
  1. MERCAPTOPURINE. [Concomitant]
     Active Substance: MERCAPTOPURINE
  2. METHOTREXATE. [Concomitant]
     Active Substance: METHOTREXATE
  3. PEG-L-ASPARAGINASE [Concomitant]
     Active Substance: PEGASPARGASE
  4. METHYLPREDNISOLONE NOS [Concomitant]
     Active Substance: METHYLPREDNISOLONE
  5. CYTARABINE INJECTION [Concomitant]
     Active Substance: CYTARABINE
  6. VINCRISTINE SULFATE. [Suspect]
     Active Substance: VINCRISTINE SULFATE
     Route: 042
  7. PREDNISONE. [Concomitant]
     Active Substance: PREDNISONE
  8. DEXAMETHASONE. [Concomitant]
     Active Substance: DEXAMETHASONE
  9. ASPARAGINASE (E.COLI) [Concomitant]
     Active Substance: ASPARAGINASE
     Indication: ACUTE LYMPHOCYTIC LEUKAEMIA
     Route: 042

REACTIONS (3)
  - Neuropathy peripheral [Unknown]
  - Paraesthesia [Unknown]
  - Pain [Unknown]
